FAERS Safety Report 24869606 (Version 1)
Quarter: 2025Q1

REPORT INFORMATION
  Report Type: Other
  Country: CA (occurrence: CA)
  Receive Date: 20250121
  Receipt Date: 20250121
  Transmission Date: 20250408
  Serious: Yes (Death, Other)
  Sender: PFIZER
  Company Number: CA-PFIZER INC-202500010713

PATIENT
  Age: 28 Year
  Sex: Male

DRUGS (2)
  1. CYTARABINE [Suspect]
     Active Substance: CYTARABINE
     Indication: Acute monocytic leukaemia
  2. HYDROXYUREA [Suspect]
     Active Substance: HYDROXYUREA
     Indication: Acute monocytic leukaemia

REACTIONS (4)
  - Cardiac arrest [Fatal]
  - Disseminated intravascular coagulation [Fatal]
  - Haemophagocytic lymphohistiocytosis [Fatal]
  - Ventricular tachycardia [Fatal]
